FAERS Safety Report 24149967 (Version 3)
Quarter: 2024Q3

REPORT INFORMATION
  Report Type: Spontaneous
  Country: PT (occurrence: PT)
  Receive Date: 20240730
  Receipt Date: 20240812
  Transmission Date: 20241017
  Serious: Yes (Other)
  Sender: TEVA
  Company Number: PT-TEVA-VS-3222514

PATIENT
  Age: 72 Year
  Sex: Female

DRUGS (1)
  1. METFORMIN [Suspect]
     Active Substance: METFORMIN HYDROCHLORIDE
     Indication: Type 2 diabetes mellitus
     Dosage: TIME INTERVAL: 0.33333333 DAYS
     Route: 065

REACTIONS (2)
  - Lactic acidosis [Unknown]
  - Acute kidney injury [Unknown]
